FAERS Safety Report 24022079 (Version 4)
Quarter: 2024Q3

REPORT INFORMATION
  Report Type: Spontaneous
  Country: CA (occurrence: CA)
  Receive Date: 20240627
  Receipt Date: 20240710
  Transmission Date: 20241016
  Serious: No
  Sender: ROCHE
  Company Number: CA-ROCHE-3547749

PATIENT
  Age: 64 Year
  Sex: Female

DRUGS (22)
  1. VABYSMO [Suspect]
     Active Substance: FARICIMAB\FARICIMAB-SVOA
     Indication: Neovascular age-related macular degeneration
     Route: 065
     Dates: start: 20240314
  2. VABYSMO [Suspect]
     Active Substance: FARICIMAB\FARICIMAB-SVOA
     Route: 065
     Dates: start: 20240412
  3. VABYSMO [Suspect]
     Active Substance: FARICIMAB\FARICIMAB-SVOA
     Route: 065
     Dates: start: 20240215
  4. VABYSMO [Suspect]
     Active Substance: FARICIMAB\FARICIMAB-SVOA
     Route: 065
     Dates: start: 20240112
  5. VABYSMO [Suspect]
     Active Substance: FARICIMAB\FARICIMAB-SVOA
     Route: 065
     Dates: start: 20231208
  6. VABYSMO [Suspect]
     Active Substance: FARICIMAB\FARICIMAB-SVOA
     Route: 065
     Dates: start: 20231103
  7. VABYSMO [Suspect]
     Active Substance: FARICIMAB\FARICIMAB-SVOA
     Route: 065
     Dates: start: 20230926
  8. VABYSMO [Suspect]
     Active Substance: FARICIMAB\FARICIMAB-SVOA
     Dosage: BROUGHT BACK TO EVERY 5 WEEKS AS A PRECAUTION, CAUTIOUS DECISION TO SHORTEN BACK TO Q5W
     Route: 065
     Dates: start: 20230825
  9. VABYSMO [Suspect]
     Active Substance: FARICIMAB\FARICIMAB-SVOA
     Dosage: EXTENDED TO EVERY 6 WEEKS
     Route: 065
     Dates: start: 20230714
  10. VABYSMO [Suspect]
     Active Substance: FARICIMAB\FARICIMAB-SVOA
     Dosage: TRYING TO EXTENT TO EVERY 5 WEEKS AGAIN, RE-EXTENDING Q5W
     Route: 065
     Dates: start: 20230609
  11. VABYSMO [Suspect]
     Active Substance: FARICIMAB\FARICIMAB-SVOA
     Route: 065
     Dates: start: 20230510
  12. VABYSMO [Suspect]
     Active Substance: FARICIMAB\FARICIMAB-SVOA
     Route: 065
     Dates: start: 20230403
  13. VABYSMO [Suspect]
     Active Substance: FARICIMAB\FARICIMAB-SVOA
     Dosage: BROUGHT BACK TO EVERY 4 WEEKS, BROUGHT BACK Q4W
     Route: 065
     Dates: start: 20230303
  14. VABYSMO [Suspect]
     Active Substance: FARICIMAB\FARICIMAB-SVOA
     Route: 065
     Dates: start: 20221228
  15. VABYSMO [Suspect]
     Active Substance: FARICIMAB\FARICIMAB-SVOA
     Route: 065
     Dates: start: 20221125
  16. VABYSMO [Suspect]
     Active Substance: FARICIMAB\FARICIMAB-SVOA
     Route: 065
     Dates: start: 20221021
  17. VABYSMO [Suspect]
     Active Substance: FARICIMAB\FARICIMAB-SVOA
     Dosage: EXTENDED TO EVERY 5 WEEKS, EXTENDED Q5W
     Route: 065
     Dates: start: 20220916
  18. VABYSMO [Suspect]
     Active Substance: FARICIMAB\FARICIMAB-SVOA
     Route: 065
     Dates: start: 20220819
  19. EYLEA [Concomitant]
     Active Substance: AFLIBERCEPT
     Dates: start: 20210114
  20. EYLEA [Concomitant]
     Active Substance: AFLIBERCEPT
     Dates: start: 20160108, end: 20200710
  21. BEOVU [Concomitant]
     Active Substance: BROLUCIZUMAB-DBLL
     Dates: start: 20200908, end: 20201118
  22. LUCENTIS [Concomitant]
     Active Substance: RANIBIZUMAB
     Dates: start: 20140822, end: 20151126

REACTIONS (2)
  - Vitreal cells [Unknown]
  - Vitreous floaters [Not Recovered/Not Resolved]
